FAERS Safety Report 8960421 (Version 1)
Quarter: 2012Q4

REPORT INFORMATION
  Report Type: 
  Country: US (occurrence: US)
  Receive Date: 20121212
  Receipt Date: 20121212
  Transmission Date: 20130627
  Serious: Yes (Hospitalization, Other)
  Sender: FDA-Public Use
  Company Number: US-BAYER-2012-129894

PATIENT
  Age: 22 Year
  Sex: Female
  Weight: 54.42 kg

DRUGS (3)
  1. YAZ [Suspect]
     Indication: ACNE
     Dosage: UNK
     Dates: start: 2000, end: 2008
  2. YAZ [Suspect]
     Indication: PREMENSTRUAL DYSPHORIC DISORDER
  3. YAZ [Suspect]
     Indication: PREMENSTRUAL SYNDROME

REACTIONS (7)
  - Cholecystectomy [None]
  - Biliary tract disorder [None]
  - Sepsis [None]
  - Pain [None]
  - Pancreatitis [None]
  - Appendicectomy [None]
  - Mental disorder [None]
